FAERS Safety Report 23698793 (Version 1)
Quarter: 2024Q2

REPORT INFORMATION
  Report Type: Spontaneous
  Country: IN (occurrence: IN)
  Receive Date: 20240402
  Receipt Date: 20240402
  Transmission Date: 20240715
  Serious: Yes (Other)
  Sender: FDA-Public Use
  Company Number: IN-TASMAN PHARMA, INC.-2024TSM00168

PATIENT
  Age: 24 Year
  Sex: Female

DRUGS (4)
  1. CLOZAPINE [Suspect]
     Active Substance: CLOZAPINE
     Indication: Schizophrenia
     Dosage: INITIAL; UNKNOWN
  2. CLOZAPINE [Suspect]
     Active Substance: CLOZAPINE
     Dosage: UP-TITRATED
  3. CLOZAPINE [Suspect]
     Active Substance: CLOZAPINE
     Dosage: 125 MG
  4. VALPROATE [Suspect]
     Active Substance: VALPROIC ACID
     Dosage: 1 G, 1X/DAY

REACTIONS (4)
  - Drug interaction [Recovered/Resolved]
  - Drug reaction with eosinophilia and systemic symptoms [Recovered/Resolved]
  - Focal dyscognitive seizures [Recovered/Resolved]
  - Myocarditis [Recovered/Resolved]
